FAERS Safety Report 6545245-X (Version None)
Quarter: 2010Q1

REPORT INFORMATION
  Report Type: 
  Country: None (occurrence: None)
  Receive Date: 20100121
  Receipt Date: 20091014
  Transmission Date: 20100710
  Serious: No
  Sender: FDA-Public Use
  Company Number: US-KINGPHARMUSA00001-K200901291

PATIENT
  Age: 9 Year
  Sex: Male
  Weight: 58.05 kg

DRUGS (1)
  1. EPIPEN [Suspect]
     Dosage: 0.3 MG, SINGLE
     Dates: start: 20091012, end: 20091012

REACTIONS (5)
  - ACCIDENTAL EXPOSURE [None]
  - HYPERHIDROSIS [None]
  - INJECTION SITE ANAESTHESIA [None]
  - INJECTION SITE PAIN [None]
  - TREMOR [None]
